FAERS Safety Report 11263342 (Version 1)
Quarter: 2015Q3

REPORT INFORMATION
  Report Type: Spontaneous
  Country: NO (occurrence: NO)
  Receive Date: 20150712
  Receipt Date: 20150712
  Transmission Date: 20151125
  Serious: Yes (Hospitalization)
  Sender: FDA-Public Use
  Company Number: NO-TEVA-574663ISR

PATIENT
  Age: 72 Year
  Sex: Male
  Weight: 77 kg

DRUGS (1)
  1. CIPROFLOXACIN TEVA [Suspect]
     Active Substance: CIPROFLOXACIN
     Indication: INFLAMMATION
     Dosage: 1500 MILLIGRAM DAILY;
     Dates: start: 20140919, end: 20141007

REACTIONS (2)
  - Rash pruritic [Recovering/Resolving]
  - Skin exfoliation [Recovering/Resolving]

NARRATIVE: CASE EVENT DATE: 20140922
